FAERS Safety Report 13090166 (Version 1)
Quarter: 2017Q1

REPORT INFORMATION
  Report Type: Spontaneous
  Country: US (occurrence: US)
  Receive Date: 20170105
  Receipt Date: 20170105
  Transmission Date: 20170428
  Serious: No
  Sender: FDA-Public Use
  Company Number: US-AVEDRO, INC.-1061582

PATIENT
  Sex: Male

DRUGS (3)
  1. PHOTREXA [Suspect]
     Active Substance: RIBOFLAVIN 5^-PHOSPHATE SODIUM
     Route: 047
     Dates: start: 20161103, end: 20161103
  2. PHOTREXA VISCOUS [Suspect]
     Active Substance: RIBOFLAVIN 5^-PHOSPHATE SODIUM
     Indication: PRODUCT USED FOR UNKNOWN INDICATION
     Route: 047
     Dates: start: 20161103, end: 20161103
  3. KXL SYSTEM, UVA LIGHT SOURCE FOR CORNEAL CROSS-LINKING [Suspect]
     Active Substance: DEVICE
     Route: 047
     Dates: start: 20161103, end: 20161103

REACTIONS (4)
  - Corneal epithelium defect [Unknown]
  - Intentional product misuse [None]
  - Inappropriate schedule of drug administration [None]
  - Therapy cessation [Recovered/Resolved]

NARRATIVE: CASE EVENT DATE: 20161103
